FAERS Safety Report 20925174 (Version 1)
Quarter: 2022Q2

REPORT INFORMATION
  Report Type: Spontaneous
  Country: CN (occurrence: CN)
  Receive Date: 20220607
  Receipt Date: 20220607
  Transmission Date: 20220721
  Serious: Yes (Other)
  Sender: FDA-Public Use
  Company Number: CN-PFIZER INC-202200798275

PATIENT
  Age: 71 Year
  Sex: Female
  Weight: 48 kg

DRUGS (2)
  1. CELECOXIB [Suspect]
     Active Substance: CELECOXIB
     Indication: Pain
     Dosage: 200 MG, 2X/DAY
     Route: 048
     Dates: start: 20220531, end: 20220531
  2. THIAMINE HYDROCHLORIDE [Concomitant]
     Active Substance: THIAMINE HYDROCHLORIDE
     Indication: Therapeutic procedure
     Dosage: 30 MG, 3X/DAY
     Route: 048
     Dates: start: 20220531, end: 20220531

REACTIONS (4)
  - Gastrointestinal disorder [Recovering/Resolving]
  - Cold sweat [Recovering/Resolving]
  - Nausea [Recovering/Resolving]
  - Vomiting [Recovering/Resolving]

NARRATIVE: CASE EVENT DATE: 20220531
